FAERS Safety Report 23833571 (Version 1)
Quarter: 2024Q2

REPORT INFORMATION
  Report Type: Spontaneous
  Country: US (occurrence: US)
  Receive Date: 20240508
  Receipt Date: 20240508
  Transmission Date: 20240716
  Serious: Yes (Hospitalization, Other)
  Sender: FDA-Public Use
  Company Number: US-ABBVIE-5746010

PATIENT
  Sex: Female
  Weight: 50.802 kg

DRUGS (3)
  1. HUMIRA [Suspect]
     Active Substance: ADALIMUMAB
     Indication: Crohn^s disease
     Dosage: FORM STRENGTH: 40 MILLIGRAM
     Route: 058
     Dates: start: 2014, end: 2023
  2. HYDRALAZINE [Concomitant]
     Active Substance: HYDRALAZINE HYDROCHLORIDE
     Indication: Hypertension
  3. LISINOPRIL [Concomitant]
     Active Substance: LISINOPRIL
     Indication: Hypertension

REACTIONS (17)
  - Abdominal pain [Not Recovered/Not Resolved]
  - Intestinal stenosis [Not Recovered/Not Resolved]
  - Flatulence [Unknown]
  - Abdominal distension [Unknown]
  - Nasopharyngitis [Recovered/Resolved]
  - Vomiting [Not Recovered/Not Resolved]
  - Intestinal obstruction [Not Recovered/Not Resolved]
  - Upper respiratory tract infection [Recovered/Resolved]
  - Weight decreased [Unknown]
  - Pyrexia [Recovered/Resolved]
  - Dizziness [Unknown]
  - Dizziness [Unknown]
  - Aphonia [Recovered/Resolved]
  - Cough [Recovered/Resolved]
  - Oropharyngeal pain [Recovered/Resolved]
  - Impaired driving ability [Unknown]
  - Remission not achieved [Not Recovered/Not Resolved]

NARRATIVE: CASE EVENT DATE: 20230101
